FAERS Safety Report 6962179-7 (Version None)
Quarter: 2010Q3

REPORT INFORMATION
  Report Type: 
  Country: None (occurrence: None)
  Receive Date: 20100902
  Receipt Date: 20100825
  Transmission Date: 20110219
  Serious: No
  Sender: FDA-Public Use
  Company Number: US-US-EMD SERONO, INC.-7015470

PATIENT
  Sex: Female

DRUGS (6)
  1. REBIF [Suspect]
     Indication: MULTIPLE SCLEROSIS
     Dates: start: 20100224, end: 20100401
  2. NEURONTIN [Concomitant]
     Dates: end: 20100401
  3. NEURONTIN [Concomitant]
     Dates: start: 20100101
  4. BACLOFEN [Concomitant]
     Dates: end: 20100401
  5. BACLOFEN [Concomitant]
     Dates: start: 20100101
  6. REGULAR INSULIN [Concomitant]
     Indication: DIABETES MELLITUS

REACTIONS (2)
  - HEPATIC FAILURE [None]
  - RENAL FAILURE [None]
